FAERS Safety Report 16902853 (Version 1)
Quarter: 2019Q4

REPORT INFORMATION
  Report Type: Spontaneous
  Country: AR (occurrence: AR)
  Receive Date: 20191010
  Receipt Date: 20191010
  Transmission Date: 20200122
  Serious: Yes (Other)
  Sender: FDA-Public Use
  Company Number: AR-GILEAD-2019-0432270

PATIENT
  Age: 55 Year
  Sex: Male

DRUGS (1)
  1. EPCLUSA [Suspect]
     Active Substance: SOFOSBUVIR\VELPATASVIR
     Indication: HEPATITIS C
     Dosage: 1 DOSAGE FORM, QD
     Route: 048
     Dates: start: 20190820

REACTIONS (4)
  - Anisocytosis [Unknown]
  - Thrombocytopenia [Unknown]
  - Lymphocyte morphology abnormal [Unknown]
  - Leukopenia [Unknown]

NARRATIVE: CASE EVENT DATE: 20190920
